FAERS Safety Report 7132613-0 (Version None)
Quarter: 2010Q4

REPORT INFORMATION
  Report Type: 
  Country: None (occurrence: None)
  Receive Date: 20101130
  Receipt Date: 20101130
  Transmission Date: 20110411
  Serious: Yes (Other)
  Sender: FDA-Public Use
  Company Number: None

PATIENT
  Sex: Female
  Weight: 9.9791 kg

DRUGS (1)
  1. HYLAND'S TEETHING TABLETS 125 CT UPC # 3 54973 75041 [Suspect]
     Indication: TEETHING
     Dosage: 6 TABLETS PER DAY
     Dates: start: 20100101, end: 20100903

REACTIONS (4)
  - CONTUSION [None]
  - PETIT MAL EPILEPSY [None]
  - PRODUCT QUALITY ISSUE [None]
  - SOMNAMBULISM [None]
